FAERS Safety Report 4314004-0 (Version None)
Quarter: 2004Q1

REPORT INFORMATION
  Report Type: 
  Country: None (occurrence: None)
  Receive Date: 20040305
  Receipt Date: 20040218
  Transmission Date: 20041129
  Serious: Yes (Hospitalization)
  Sender: FDA-Public Use
  Company Number: DSA_24016_2004

PATIENT
  Age: 32 Year
  Sex: Female

DRUGS (3)
  1. LORAZEPAM [Suspect]
     Dosage: 0.5 MG ONCE PO
     Route: 048
     Dates: start: 20040214, end: 20040214
  2. HOGGAR N [Suspect]
     Dosage: 2500 MG ONCE PO
     Route: 048
     Dates: start: 20040214, end: 20040214
  3. TRUXAL [Suspect]
     Dosage: 100 MG ONCE PO
     Route: 048
     Dates: start: 20040214, end: 20040214

REACTIONS (6)
  - ACIDOSIS [None]
  - BLOOD PH DECREASED [None]
  - FATIGUE [None]
  - INTENTIONAL OVERDOSE [None]
  - MYDRIASIS [None]
  - TACHYCARDIA [None]
